FAERS Safety Report 9899750 (Version 3)
Quarter: 2014Q2

REPORT INFORMATION
  Report Type: Spontaneous
  Country: IT (occurrence: IT)
  Receive Date: 20140214
  Receipt Date: 20140409
  Transmission Date: 20141212
  Serious: Yes (Hospitalization)
  Sender: FDA-Public Use
  Company Number: IT-ABBVIE-14P-083-1201826-00

PATIENT
  Age: 78 Year
  Sex: Female

DRUGS (3)
  1. KLACID [Suspect]
     Indication: ANTIBIOTIC PROPHYLAXIS
     Dates: start: 201401, end: 20140124
  2. COUMADIN [Interacting]
     Indication: AORTIC VALVE REPLACEMENT
     Route: 048
     Dates: start: 20040101, end: 20140124
  3. CLEXANE [Interacting]
     Indication: DEEP VEIN THROMBOSIS
     Dates: start: 201401, end: 20140124

REACTIONS (4)
  - Anaemia [Recovering/Resolving]
  - Drug interaction [Recovering/Resolving]
  - Epistaxis [Recovering/Resolving]
  - Hypocoagulable state [Recovering/Resolving]
